FAERS Safety Report 9537712 (Version 2)
Quarter: 2013Q4

REPORT INFORMATION
  Report Type: Spontaneous
  Country: CH (occurrence: CH)
  Receive Date: 20130919
  Receipt Date: 20131031
  Transmission Date: 20140711
  Serious: Yes (Hospitalization)
  Sender: FDA-Public Use
  Company Number: CH-ASTRAZENECA-2013SE69156

PATIENT
  Age: 60 Year
  Sex: Female
  Weight: 106.5 kg

DRUGS (21)
  1. SEROQUEL XR [Suspect]
     Indication: MENTAL DISORDER
     Route: 048
     Dates: start: 20130606, end: 20130619
  2. SEROQUEL XR [Suspect]
     Indication: MENTAL DISORDER
     Route: 048
  3. SEROQUEL XR [Suspect]
     Indication: MENTAL DISORDER
     Route: 048
     Dates: end: 20130606
  4. SEROQUEL XR [Suspect]
     Indication: MENTAL DISORDER
     Dosage: 2X SEROQUEL XR 300 MG + 1X SEROQUEL XR 200 MG
     Route: 048
     Dates: start: 20130606, end: 20130619
  5. SEROQUEL XR [Suspect]
     Indication: MENTAL DISORDER
     Dosage: 2 TABLETS IN THE EVENING
     Route: 048
     Dates: start: 20130619
  6. SEROQUEL XR [Suspect]
     Indication: MENTAL DISORDER
     Route: 048
     Dates: start: 20130619
  7. TRANXILIUM [Suspect]
     Indication: MENTAL DISORDER
     Route: 048
     Dates: start: 20130606
  8. TRANXILIUM [Suspect]
     Indication: MENTAL DISORDER
     Dosage: DOSE DECREASED TO 1/2 - 1/2 - 1/4 - 0
     Route: 048
  9. TRANXILIUM [Suspect]
     Indication: MENTAL DISORDER
     Dosage: 10 MG IN MORNING, 10 MG IN THE NOON AND 5 MG IN EVENING
     Route: 048
     Dates: start: 20130606
  10. TRANXILIUM [Suspect]
     Indication: MENTAL DISORDER
     Route: 048
     Dates: end: 20130619
  11. TRANXILIUM [Suspect]
     Indication: MENTAL DISORDER
     Dosage: DOSE REDUCED
     Route: 048
     Dates: start: 20130619
  12. LYRICA [Suspect]
     Indication: MENTAL DISORDER
     Route: 048
     Dates: start: 20130606
  13. LYRICA [Suspect]
     Indication: MENTAL DISORDER
     Route: 048
  14. LYRICA [Suspect]
     Indication: MENTAL DISORDER
     Route: 048
     Dates: end: 20130606
  15. LYRICA [Suspect]
     Indication: MENTAL DISORDER
     Route: 048
     Dates: start: 20130606, end: 20130619
  16. LYRICA [Suspect]
     Indication: MENTAL DISORDER
     Route: 048
     Dates: start: 20130619
  17. CYMBALTA [Suspect]
     Indication: MENTAL DISORDER
     Dosage: 60 MG IN MORNING AND 30 MG IN EVENING
     Route: 048
     Dates: end: 20130606
  18. CYMBALTA [Suspect]
     Indication: MENTAL DISORDER
     Route: 048
     Dates: start: 20130606
  19. TILUR [Concomitant]
     Route: 048
     Dates: end: 20130619
  20. FRAXIPARINE [Concomitant]
     Route: 058
     Dates: end: 20130619
  21. ACEMETACIN [Concomitant]
     Route: 048

REACTIONS (3)
  - Respiratory failure [Recovered/Resolved]
  - Altered state of consciousness [Recovered/Resolved]
  - Somnolence [Recovered/Resolved]
